FAERS Safety Report 6264720-9 (Version None)
Quarter: 2009Q3

REPORT INFORMATION
  Report Type: 
  Country: None (occurrence: None)
  Receive Date: 20090710
  Receipt Date: 20090706
  Transmission Date: 20100115
  Serious: Yes (Hospitalization, Other)
  Sender: FDA-Public Use
  Company Number: AU-PFIZER INC-2009236000

PATIENT
  Age: 22 Year

DRUGS (2)
  1. CHAMPIX [Suspect]
     Dosage: 2 MG, 1X/DAY
     Dates: start: 20090605, end: 20090613
  2. AMITRIPTYLINE [Suspect]
     Dosage: 75 MG, 1X/DAY
     Dates: end: 20090613

REACTIONS (3)
  - DEPRESSION [None]
  - OVERDOSE [None]
  - SUICIDE ATTEMPT [None]
